FAERS Safety Report 7933471 (Version 2)
Quarter: 2013Q3

REPORT INFORMATION
  Report Type: Spontaneous
  Country: DE (occurrence: None)
  Receive Date: 20110418
  Receipt Date: 20130816
  Transmission Date: 20140515
  Serious: Yes (Hospitalization)
  Sender: FDA-Public Use
  Company Number: 2011001683

PATIENT
  Age: 70 Year
  Sex: Male

DRUGS (1)
  1. ERLOTINIB HYDROCHLORIDE [Suspect]
     Indication: NON-SMALL CELL LUNG CANCER
     Dosage: 150 MG, UID/QD, ORAL
     Route: 048
     Dates: start: 20110207, end: 20110304

REACTIONS (6)
  - General physical health deterioration [None]
  - Pyrexia [None]
  - Skin toxicity [None]
  - Disease progression [None]
  - Clostridium difficile colitis [None]
  - Malignant neoplasm progression [None]
